FAERS Safety Report 4766227-4 (Version None)
Quarter: 2005Q3

REPORT INFORMATION
  Report Type: 
  Country: None (occurrence: None)
  Receive Date: 20050912
  Receipt Date: 20050616
  Transmission Date: 20060218
  Serious: Yes (Hospitalization)
  Sender: FDA-Public Use
  Company Number: US-MERCK-0506USA02691

PATIENT
  Age: 73 Year
  Sex: Female
  Weight: 63 kg

DRUGS (6)
  1. VIOXX [Suspect]
     Indication: ARTHRALGIA
     Route: 048
     Dates: start: 20001101
  2. VIOXX [Suspect]
     Route: 048
     Dates: end: 20030101
  3. SYNTHROID [Concomitant]
     Indication: THYROID DISORDER
     Route: 065
     Dates: start: 19940101
  4. TENORMIN [Concomitant]
     Indication: HYPERTENSION
     Route: 065
     Dates: start: 19990101
  5. IBUPROFEN [Concomitant]
     Route: 065
  6. ASPIRIN [Concomitant]
     Indication: PAIN
     Route: 065

REACTIONS (8)
  - ARTERIAL OCCLUSIVE DISEASE [None]
  - ARTERIOSCLEROSIS [None]
  - BLOOD CHOLESTEROL INCREASED [None]
  - BLOOD TRIGLYCERIDES INCREASED [None]
  - CARDIAC VALVE DISEASE [None]
  - FIBROMYALGIA [None]
  - GALLBLADDER DISORDER [None]
  - MYOCARDIAL INFARCTION [None]
